FAERS Safety Report 19543272 (Version 1)
Quarter: 2021Q3

REPORT INFORMATION
  Report Type: Spontaneous
  Country: JP (occurrence: JP)
  Receive Date: 20210713
  Receipt Date: 20210713
  Transmission Date: 20211014
  Serious: Yes (Other)
  Sender: FDA-Public Use
  Company Number: JP-ASTRAZENECA-2021A404012

PATIENT
  Sex: Female

DRUGS (1)
  1. FASENRA [Suspect]
     Active Substance: BENRALIZUMAB
     Dosage: DOSE UNKNOWN
     Route: 058
     Dates: start: 20210311

REACTIONS (15)
  - Nasal congestion [Recovering/Resolving]
  - Hypersensitivity [Unknown]
  - Hyposmia [Not Recovered/Not Resolved]
  - Grip strength decreased [Unknown]
  - Tongue oedema [Not Recovered/Not Resolved]
  - Menopausal symptoms [Unknown]
  - Oedema mucosal [Unknown]
  - Pyrexia [Recovered/Resolved]
  - Oedema peripheral [Unknown]
  - Gingival swelling [Unknown]
  - Mouth swelling [Unknown]
  - Musculoskeletal stiffness [Not Recovered/Not Resolved]
  - Arthralgia [Not Recovered/Not Resolved]
  - Taste disorder [Recovering/Resolving]
  - Headache [Unknown]

NARRATIVE: CASE EVENT DATE: 2021
